FAERS Safety Report 8068150-9 (Version None)
Quarter: 2012Q1

REPORT INFORMATION
  Report Type: 
  Country: None (occurrence: None)
  Receive Date: 20120124
  Receipt Date: 20110927
  Transmission Date: 20120608
  Serious: No
  Sender: FDA-Public Use
  Company Number: US-AMGEN-USASP2011049948

PATIENT
  Age: 60 Year
  Sex: Female

DRUGS (7)
  1. PROLIA [Suspect]
     Indication: OSTEOPOROSIS POSTMENOPAUSAL
     Dosage: 60 MG, Q6MO
     Dates: start: 20110817
  2. CELEXA [Concomitant]
     Dosage: 1 MG, UNK
  3. QUESTRAN [Concomitant]
     Dosage: 1 G, QWK
  4. NORTRIPTYLINE HCL [Concomitant]
     Dosage: 2 MG, QWK
  5. DIAZEPAM [Concomitant]
     Dosage: UNK
  6. HYDROCODONE BITARTRATE [Concomitant]
     Dosage: UNK
  7. GABAPENTIN [Concomitant]
     Dosage: 2 MG, QWK

REACTIONS (11)
  - PYREXIA [None]
  - ABDOMINAL PAIN [None]
  - ABDOMINAL DISTENSION [None]
  - HEADACHE [None]
  - NIGHT SWEATS [None]
  - FATIGUE [None]
  - HYPERHIDROSIS [None]
  - BLOOD POTASSIUM DECREASED [None]
  - BLOOD CALCIUM DECREASED [None]
  - DECREASED APPETITE [None]
  - BONE PAIN [None]
